FAERS Safety Report 22226874 (Version 2)
Quarter: 2023Q2

REPORT INFORMATION
  Report Type: Spontaneous
  Country: CN (occurrence: CN)
  Receive Date: 20230419
  Receipt Date: 20230522
  Transmission Date: 20230721
  Serious: Yes (Other)
  Sender: FDA-Public Use
  Company Number: CN-BAXTER-2023BAX018332

PATIENT
  Age: 54 Year
  Sex: Female

DRUGS (2)
  1. SODIUM CHLORIDE [Suspect]
     Active Substance: SODIUM CHLORIDE
     Indication: Infection prophylaxis
     Dosage: INFUSION AT 10:00 AM
     Route: 042
  2. ETIMICIN SULFATE [Suspect]
     Active Substance: ETIMICIN SULFATE
     Indication: Infection prophylaxis
     Dosage: INFUSION
     Route: 042

REACTIONS (6)
  - Anaphylactic shock [Recovered/Resolved]
  - Hypoaesthesia [Recovered/Resolved]
  - Apathy [Recovered/Resolved]
  - Erythema [Recovered/Resolved]
  - Cold sweat [Recovered/Resolved]
  - Dyspnoea [Recovered/Resolved]
